FAERS Safety Report 9242234 (Version 3)
Quarter: 2013Q2

REPORT INFORMATION
  Report Type: Spontaneous
  Country: IT (occurrence: IT)
  Receive Date: 20130419
  Receipt Date: 20130523
  Transmission Date: 20140414
  Serious: Yes (Death, Hospitalization)
  Sender: FDA-Public Use
  Company Number: IT-TEVA-397733ISR

PATIENT
  Age: 57 Year
  Sex: Male
  Weight: 71 kg

DRUGS (6)
  1. FLUOROURACILE TEVA [Suspect]
     Indication: LARYNGEAL CANCER
     Dosage: 1G/20ML, 7500 MG TOTAL
     Route: 042
     Dates: start: 20130306, end: 20130311
  2. CISPLATINO TEVA ITALIA [Suspect]
     Indication: LARYNGEAL CANCER
     Dosage: 0.5 MG/ML, 140 MG TOTAL
     Route: 041
     Dates: start: 20130306, end: 20130306
  3. ERBITUX [Suspect]
     Indication: LARYNGEAL CANCER
     Dosage: 5MG/ML, 600 MG TOTAL
     Route: 041
     Dates: start: 20130306, end: 20130306
  4. ALOXI [Concomitant]
     Indication: PROPHYLAXIS OF NAUSEA AND VOMITING
     Dosage: 250 MICROGRAM DAILY;
     Route: 042
     Dates: start: 20130306, end: 20130306
  5. MAGNESIO SOLFATO S.A.L.F. [Concomitant]
     Indication: ELECTROLYTE SUBSTITUTION THERAPY
     Dosage: 2 GRAM DAILY;
     Route: 041
     Dates: start: 20130306, end: 20130306
  6. SODIO CLORURO CON POTASSIO CLORURO BAXTER [Concomitant]
     Indication: ELECTROLYTE SUBSTITUTION THERAPY
     Dosage: 20 MILLIEQUIVALENTS DAILY;
     Route: 041
     Dates: start: 20130306, end: 20130306

REACTIONS (3)
  - Renal failure acute [Fatal]
  - Pancytopenia [Fatal]
  - Dyspnoea [Fatal]
